FAERS Safety Report 5127996-7 (Version None)
Quarter: 2006Q4

REPORT INFORMATION
  Report Type: 
  Country: None (occurrence: None)
  Receive Date: 20061010
  Receipt Date: 20060926
  Transmission Date: 20070319
  Serious: Yes (Life-Threatening, Hospitalization)
  Sender: FDA-Public Use
  Company Number: GXKR2006FR03438

PATIENT
  Age: 72 Year
  Sex: Female

DRUGS (2)
  1. CO-TRIMOXAZOLE (NGX) (SULFAMETHOXAZOLE, TRIMETHOPRIM) [Suspect]
     Indication: PNEUMOCYSTIS JIROVECI PNEUMONIA
  2. METHOTREXATE SODIUM [Concomitant]

REACTIONS (18)
  - BLOOD CREATINE INCREASED [None]
  - BLOOD UREA INCREASED [None]
  - CSF PROTEIN INCREASED [None]
  - CYTOLYTIC HEPATITIS [None]
  - ENCEPHALITIS HERPES [None]
  - ENCEPHALOPATHY [None]
  - ERYTHEMA [None]
  - FACE OEDEMA [None]
  - GLASGOW COMA SCALE ABNORMAL [None]
  - HUMAN HERPESVIRUS 6 INFECTION [None]
  - HYPERSENSITIVITY [None]
  - LYMPHADENOPATHY [None]
  - PANCYTOPENIA [None]
  - PYREXIA [None]
  - RASH MACULO-PAPULAR [None]
  - RENAL FAILURE [None]
  - TRANSAMINASES INCREASED [None]
  - VIRAL INFECTION [None]
